FAERS Safety Report 9800289 (Version 1)
Quarter: 2014Q1

REPORT INFORMATION
  Report Type: Spontaneous
  Country: NL (occurrence: NL)
  Receive Date: 20140106
  Receipt Date: 20140106
  Transmission Date: 20141002
  Serious: Yes (Life-Threatening)
  Sender: FDA-Public Use
  Company Number: CHPA2014NL000507

PATIENT
  Age: 70 Year
  Sex: Male
  Weight: 40 kg

DRUGS (2)
  1. NICOTINELL TTS 30 [Suspect]
     Indication: NICOTINE DEPENDENCE
     Dosage: UNK
     Route: 062
     Dates: start: 20131229, end: 20140102
  2. VITAMIN C [Suspect]
     Dosage: UNK
     Dates: start: 20131228

REACTIONS (2)
  - Myocardial infarction [Recovering/Resolving]
  - Drug interaction [Recovering/Resolving]
